FAERS Safety Report 25878954 (Version 2)
Quarter: 2025Q4

REPORT INFORMATION
  Report Type: Spontaneous
  Country: US (occurrence: US)
  Receive Date: 20251003
  Receipt Date: 20251024
  Transmission Date: 20260118
  Serious: Yes (Other)
  Sender: AMERICAN REGENT
  Company Number: US-AMERICAN REGENT INC-2025003674

PATIENT
  Age: 5 Year
  Sex: Female
  Weight: 11.4 kg

DRUGS (11)
  1. VENOFER [Suspect]
     Active Substance: IRON SUCROSE
     Indication: Iron deficiency anaemia
     Dosage: 57 MILLIGRAM (USING 5MG/KG) (2.85 ML IRON SUCROSE/ 35.15 ML 0.9% SODIUM CHLORIDE), SINGLE, SINGLE
     Route: 042
     Dates: start: 20220629, end: 20220629
  2. VENOFER [Suspect]
     Active Substance: IRON SUCROSE
     Dosage: 79.8 MILLIGRAM (USING 7MG/KG) (3.99 ML) IRON SUCROSE / 50 ML 0.9% SODIUM CHLORIDE), SINGLE
     Route: 042
     Dates: start: 20220701, end: 20220701
  3. ALBUTEROL [Concomitant]
     Active Substance: ALBUTEROL
     Indication: Wheezing
     Dosage: 2.5 MILLIGRAM NEB Q1H PRN
  4. ALBUTEROL [Concomitant]
     Active Substance: ALBUTEROL
     Indication: Dyspnoea
  5. BUDESONIDE [Concomitant]
     Active Substance: BUDESONIDE
     Indication: Product used for unknown indication
     Dosage: 0.5 MILLIGRAM NEB, BID
  6. IPRATROPIUM [Concomitant]
     Active Substance: IPRATROPIUM
     Indication: Secretion discharge
     Dosage: 250 MICROGRAM NEB, Q8H PRN
  7. LACTOBACILLUS RHAMNOSUS [Concomitant]
     Active Substance: LACTOBACILLUS RHAMNOSUS
     Indication: Product used for unknown indication
     Dosage: ^1 PACKET PER GT DAILY^
  8. LEVETIRACETAM [Concomitant]
     Active Substance: LEVETIRACETAM
     Indication: Seizure
     Dosage: 500 MILLIGRAM, PER GT Q12H
  9. PHENOBARBITAL [Concomitant]
     Active Substance: PHENOBARBITAL
     Indication: Seizure
     Dosage: 48.6 MILLIGRAM, PER GT Q12H
  10. RIVAROXABAN [Concomitant]
     Active Substance: RIVAROXABAN
     Indication: Thrombosis
     Dosage: 5 MILLIGRAM, PER GT Q12H
  11. SODIUM CHLORIDE [Concomitant]
     Active Substance: SODIUM CHLORIDE
     Indication: Obstructive airways disorder
     Dosage: 4 MILLILITER, NEB Q6H PRN

REACTIONS (3)
  - Seizure [Recovered/Resolved]
  - Incorrect dose administered [Unknown]
  - Inappropriate schedule of product administration [Recovered/Resolved]

NARRATIVE: CASE EVENT DATE: 20220629
